FAERS Safety Report 13035050 (Version 4)
Quarter: 2017Q1

REPORT INFORMATION
  Report Type: Report from Study
  Country: CA (occurrence: CA)
  Receive Date: 20161216
  Receipt Date: 20170120
  Transmission Date: 20170428
  Serious: Yes (Hospitalization)
  Sender: FDA-Public Use
  Company Number: CA-009507513-1609CAN009194

PATIENT
  Age: 69 Year
  Sex: Male
  Weight: 93.3 kg

DRUGS (19)
  1. TYLENOL [Concomitant]
     Active Substance: ACETAMINOPHEN
     Indication: OSTEOARTHRITIS
     Dosage: 2000 MG DAILY, PRN
     Route: 048
     Dates: start: 201201
  2. SODIUM CHLORIDE. [Concomitant]
     Active Substance: SODIUM CHLORIDE
     Indication: THERAPEUTIC PROCEDURE
     Dosage: 50 ML, ONCE
     Route: 042
     Dates: start: 20160907, end: 20160907
  3. PEMBROLIZUMAB. [Suspect]
     Active Substance: PEMBROLIZUMAB
     Dosage: 200 MG, Q3W
     Route: 042
     Dates: start: 20161104
  4. CARBOPLATIN. [Suspect]
     Active Substance: CARBOPLATIN
     Dosage: AUC 5 , Q3W
     Route: 042
     Dates: start: 20160907, end: 20160907
  5. DECADRON [Suspect]
     Active Substance: DEXAMETHASONE
     Indication: NAUSEA
     Dosage: 10 MG, ONCE
     Route: 042
     Dates: start: 20160907, end: 20160907
  6. PEMETREXED [Suspect]
     Active Substance: PEMETREXED
     Indication: NON-SMALL CELL LUNG CANCER
     Dosage: 500 MG/M2, Q3W
     Route: 042
     Dates: start: 20160706, end: 20160817
  7. CYANOCOBALAMIN. [Concomitant]
     Active Substance: CYANOCOBALAMIN
     Indication: ROUTINE HEALTH MAINTENANCE
     Dosage: TOTAL DAILY DOSE 1000 MEQ; FREQUENCY: OTHER
     Route: 030
     Dates: start: 20160616
  8. SYNTHROID [Concomitant]
     Active Substance: LEVOTHYROXINE SODIUM
     Indication: HYPOTHYROIDISM
     Dosage: 0.088 MG, QD
     Route: 048
     Dates: start: 201401, end: 20160906
  9. PEMBROLIZUMAB. [Suspect]
     Active Substance: PEMBROLIZUMAB
     Indication: NON-SMALL CELL LUNG CANCER
     Dosage: 200 MG, Q3W
     Route: 042
     Dates: start: 20160706, end: 20160817
  10. PEMBROLIZUMAB. [Suspect]
     Active Substance: PEMBROLIZUMAB
     Dosage: 200 MG, Q3W
     Route: 042
     Dates: start: 20160907, end: 20160907
  11. SYNTHROID [Concomitant]
     Active Substance: LEVOTHYROXINE SODIUM
     Indication: HYPOTHYROIDISM
     Dosage: 0.1 MG, QD
     Route: 048
     Dates: start: 20160907, end: 20160928
  12. DEXAMETHASONE. [Suspect]
     Active Substance: DEXAMETHASONE
     Indication: NAUSEA
     Dosage: 4 MG, BID
     Route: 048
     Dates: start: 20160906, end: 20160908
  13. PANTOLOC [Concomitant]
     Active Substance: PANTOPRAZOLE SODIUM
     Indication: DYSPEPSIA
     Dosage: 40 MG, QD
     Route: 048
     Dates: start: 20160526
  14. COPHYLAC [Concomitant]
     Indication: COUGH
     Dosage: 15 GTT, BID
     Route: 048
     Dates: start: 20160315
  15. PEMETREXED [Suspect]
     Active Substance: PEMETREXED
     Dosage: 500 MG/M2, Q3W
     Route: 042
     Dates: start: 20160907, end: 20160907
  16. CARBOPLATIN. [Suspect]
     Active Substance: CARBOPLATIN
     Indication: NON-SMALL CELL LUNG CANCER
     Dosage: AUC 5 , Q3W
     Route: 042
     Dates: start: 20160706, end: 20160817
  17. KYTRIL [Concomitant]
     Active Substance: GRANISETRON HYDROCHLORIDE
     Indication: NAUSEA
     Dosage: 1 MG, ONCE
     Route: 042
     Dates: start: 20160907, end: 20160907
  18. SYMBICORT [Concomitant]
     Active Substance: BUDESONIDE\FORMOTEROL FUMARATE DIHYDRATE
     Indication: ASTHMA
     Dosage: 400 MICROGRAM, BID FORMULATION: INHALANT
     Route: 055
     Dates: start: 201301
  19. FOLIC ACID. [Concomitant]
     Active Substance: FOLIC ACID
     Indication: ROUTINE HEALTH MAINTENANCE
     Dosage: 1 MG, QD
     Route: 055
     Dates: start: 20160616

REACTIONS (2)
  - Diabetes mellitus [Recovered/Resolved]
  - Type 2 diabetes mellitus [Recovered/Resolved]

NARRATIVE: CASE EVENT DATE: 20160914
